FAERS Safety Report 16058217 (Version 1)
Quarter: 2019Q1

REPORT INFORMATION
  Report Type: Spontaneous
  Country: US (occurrence: US)
  Receive Date: 20190311
  Receipt Date: 20190311
  Transmission Date: 20190418
  Serious: No
  Sender: FDA-Public Use
  Company Number: US-VYERA PHARMACEUTICALS, LLC-2018VYE00054

PATIENT
  Age: 32 Year
  Sex: Male

DRUGS (7)
  1. TRIAMCINOLONE [Concomitant]
     Active Substance: TRIAMCINOLONE
     Dosage: UNK, 3X/DAY
     Route: 061
     Dates: start: 20181115
  2. LEUCOVORIN. [Concomitant]
     Active Substance: LEUCOVORIN
     Dosage: 3 TABLETS, 3X/WEEK, M, W, + F
     Route: 048
     Dates: start: 20181101
  3. AZITHROMYCIN ANHYDROUS. [Concomitant]
     Active Substance: AZITHROMYCIN ANHYDROUS
     Dosage: 2 TABLETS, 1X/WEEK
     Route: 048
     Dates: start: 20181102
  4. CLINDAMYCIN. [Concomitant]
     Active Substance: CLINDAMYCIN
     Dosage: 1 CAPSULES, 3X/DAY
     Route: 048
     Dates: start: 20181115
  5. ONDANSETRON ODT [Concomitant]
     Active Substance: ONDANSETRON
     Dosage: 1 TABLETS, UP TO 3X/DAY
     Route: 048
     Dates: start: 20181128
  6. TRIUMEQ [Concomitant]
     Active Substance: ABACAVIR SULFATE\DOLUTEGRAVIR SODIUM\LAMIVUDINE
     Dosage: 1 TABLETS, 1X/DAY
     Route: 048
     Dates: start: 20181114
  7. DARAPRIM [Suspect]
     Active Substance: PYRIMETHAMINE
     Indication: TOXOPLASMOSIS
     Dosage: 100 MG, 3X/DAY
     Route: 048
     Dates: start: 20181107

REACTIONS (2)
  - Migraine [Not Recovered/Not Resolved]
  - Nausea [Not Recovered/Not Resolved]

NARRATIVE: CASE EVENT DATE: 20181206
